FAERS Safety Report 5302869-5 (Version None)
Quarter: 2007Q2

REPORT INFORMATION
  Report Type: 
  Country: None (occurrence: None)
  Receive Date: 20070419
  Receipt Date: 20070419
  Transmission Date: 20071010
  Serious: Yes (Other)
  Sender: FDA-Public Use
  Company Number: None

PATIENT

DRUGS (2)
  1. ETANERCEPT AMGEN [Suspect]
     Indication: PSORIASIS
     Dosage: 50MG TWICE WEEKLY IM
     Route: 030
  2. ETANERCEPT AMGEN [Suspect]
     Indication: PSORIATIC ARTHROPATHY
     Dosage: 50MG TWICE WEEKLY IM
     Route: 030

REACTIONS (4)
  - BREAST CANCER FEMALE [None]
  - BREAST CANCER RECURRENT [None]
  - LUNG NEOPLASM MALIGNANT [None]
  - METASTASES TO BONE [None]
